FAERS Safety Report 5355311-2 (Version None)
Quarter: 2007Q2

REPORT INFORMATION
  Report Type: 
  Country: None (occurrence: None)
  Receive Date: 20070601
  Receipt Date: 20070221
  Transmission Date: 20071010
  Serious: No
  Sender: FDA-Public Use
  Company Number: S07-USA-00812-01

PATIENT
  Age: 32 Year
  Sex: Female

DRUGS (6)
  1. CAMPRAL [Suspect]
     Indication: SELF INJURIOUS BEHAVIOUR
     Dosage: 333 MG TID PO
     Route: 048
     Dates: start: 20070201, end: 20070201
  2. SEROQUEL [Concomitant]
  3. NEURONTIN [Concomitant]
  4. LITHIUM CARBONATE [Concomitant]
  5. TOPAMAX [Concomitant]
  6. INHALER (NOS) [Concomitant]

REACTIONS (1)
  - PANIC REACTION [None]
